FAERS Safety Report 4953592-8 (Version None)
Quarter: 2006Q1

REPORT INFORMATION
  Report Type: 
  Country: None (occurrence: None)
  Receive Date: 20060324
  Receipt Date: 20060314
  Transmission Date: 20060701
  Serious: Yes (Death)
  Sender: FDA-Public Use
  Company Number: US-MERCK-0603USA02639

PATIENT
  Age: 33 Year
  Sex: Male

DRUGS (2)
  1. VIOXX [Suspect]
     Route: 048
     Dates: start: 20030501
  2. BEXTRA [Suspect]
     Route: 065
     Dates: start: 20030501

REACTIONS (2)
  - INJURY [None]
  - MYOCARDIAL INFARCTION [None]
